FAERS Safety Report 9686254 (Version 1)
Quarter: 2013Q4

REPORT INFORMATION
  Report Type: Spontaneous
  Country: US (occurrence: US)
  Receive Date: 20131113
  Receipt Date: 20131113
  Transmission Date: 20140711
  Serious: Yes (Hospitalization)
  Sender: FDA-Public Use
  Company Number: US-CUBIST PHARMACEUTICAL, INC.-2013CBST000188

PATIENT
  Age: 75 Year
  Sex: Female

DRUGS (1)
  1. CUBICIN [Suspect]
     Indication: PRODUCT USED FOR UNKNOWN INDICATION
     Dosage: UNK UNK UNK

REACTIONS (1)
  - Eosinophilic pneumonia [Unknown]
